FAERS Safety Report 5900133-4 (Version None)
Quarter: 2008Q3

REPORT INFORMATION
  Report Type: 
  Country: None (occurrence: None)
  Receive Date: 20080926
  Receipt Date: 20080918
  Transmission Date: 20090109
  Serious: Yes (Hospitalization, Other)
  Sender: FDA-Public Use
  Company Number: US-MERCK-0705USA05362

PATIENT
  Age: 60 Year
  Sex: Female
  Weight: 54 kg

DRUGS (4)
  1. FOSAMAX [Suspect]
     Indication: OSTEOPOROSIS
     Route: 048
     Dates: start: 20040701, end: 20060101
  2. SUDAFED 12 HOUR [Suspect]
     Route: 065
  3. CALCIUM (UNSPECIFIED) [Concomitant]
     Route: 065
  4. ASPIRIN [Concomitant]
     Route: 065

REACTIONS (21)
  - ADVERSE DRUG REACTION [None]
  - ARTHRITIS [None]
  - ATRIAL FIBRILLATION [None]
  - BLINDNESS TRANSIENT [None]
  - BLOOD DISORDER [None]
  - DEEP VEIN THROMBOSIS [None]
  - DENTAL CARIES [None]
  - DIZZINESS [None]
  - DRUG INEFFECTIVE [None]
  - GINGIVAL DISORDER [None]
  - HAEMATOMA [None]
  - HYPERSENSITIVITY [None]
  - HYPOAESTHESIA [None]
  - JOINT INJURY [None]
  - NASAL CONGESTION [None]
  - NAUSEA [None]
  - OTITIS MEDIA [None]
  - SUPRAVENTRICULAR TACHYCARDIA [None]
  - TOOTH FRACTURE [None]
  - TRISMUS [None]
  - VOMITING [None]
